FAERS Safety Report 6715435-1 (Version None)
Quarter: 2010Q2

REPORT INFORMATION
  Report Type: 
  Country: None (occurrence: None)
  Receive Date: 20100507
  Receipt Date: 20100507
  Transmission Date: 20101027
  Serious: No
  Sender: FDA-Public Use
  Company Number: None

PATIENT
  Age: 51 Month
  Sex: Male
  Weight: 14.5151 kg

DRUGS (1)
  1. ZYRTEC [Suspect]

REACTIONS (1)
  - SKIN REACTION [None]
